FAERS Safety Report 8380753-0 (Version None)
Quarter: 2012Q2

REPORT INFORMATION
  Report Type: 
  Country: None (occurrence: None)
  Receive Date: 20120523
  Receipt Date: 20120521
  Transmission Date: 20120825
  Serious: No
  Sender: FDA-Public Use
  Company Number: US-PFIZER INC-2012123655

PATIENT
  Sex: Female
  Weight: 63.492 kg

DRUGS (16)
  1. CHANTIX [Suspect]
     Indication: SMOKING CESSATION THERAPY
     Dosage: 0.5 MG, DAILY
     Dates: start: 20111001, end: 20110101
  2. SPIRIVA [Concomitant]
     Indication: LUNG DISORDER
     Dosage: UNK ONE PUFF, DAILY
  3. VITAMIN D [Concomitant]
     Dosage: 2000 IU, DAILY
  4. LYRICA [Concomitant]
     Indication: PAIN IN EXTREMITY
     Dosage: 75 MG, AS NEEDED
  5. LANTUS [Concomitant]
     Indication: DIABETES MELLITUS
     Dosage: 15 IU, DAILY
  6. POTASSIUM CHLORIDE [Concomitant]
     Dosage: 20 MG, DAILY
  7. MULTI-VITAMINS [Concomitant]
     Dosage: UNK
  8. ZOLPIDEM [Concomitant]
     Indication: SLEEP DISORDER
     Dosage: SOMETIMES 1 AND SOMETIMES HALF TABLET OF 10 MG, DAILY
     Route: 048
  9. ACETYLSALICYLIC ACID [Concomitant]
     Indication: ANTICOAGULANT THERAPY
     Dosage: 81 MG, DAILY
  10. AZOR [Concomitant]
     Dosage: 40 MG, DAILY
  11. SERTRALINE [Concomitant]
     Indication: STRESS
     Dosage: 100 MG, AS NEEDED
  12. HUMALOG [Concomitant]
     Indication: DIABETES MELLITUS
     Dosage: UNK
  13. ZETIA [Concomitant]
     Dosage: 10 MG, DAILY
  14. CYMBALTA [Concomitant]
     Indication: PAIN IN EXTREMITY
     Dosage: 60 MG, DAILY
  15. CHANTIX [Suspect]
     Dosage: 1 MG, 2X/DAY
     Dates: start: 20110101, end: 20111115
  16. ALBUTEROL [Concomitant]
     Indication: LUNG DISORDER
     Dosage: UNK, 4X/DAY

REACTIONS (1)
  - ABNORMAL DREAMS [None]
